FAERS Safety Report 15655486 (Version 1)
Quarter: 2018Q4

REPORT INFORMATION
  Report Type: Spontaneous
  Country: US (occurrence: US)
  Receive Date: 20181115
  Receipt Date: 20181115
  Transmission Date: 20190205
  Serious: No
  Sender: FDA-Public Use
  Company Number: None

PATIENT
  Age: 60 Year

DRUGS (1)
  1. CYCLOSPORINE CAP [Suspect]
     Active Substance: CYCLOSPORINE
     Dates: start: 20180814

REACTIONS (1)
  - Gingival hypertrophy [None]

NARRATIVE: CASE EVENT DATE: 20180814
